FAERS Safety Report 7389054-0 (Version None)
Quarter: 2011Q2

REPORT INFORMATION
  Report Type: 
  Country: None (occurrence: None)
  Receive Date: 20110401
  Receipt Date: 20110322
  Transmission Date: 20111010
  Serious: Yes (Other)
  Sender: FDA-Public Use
  Company Number: US-RB-023510-11

PATIENT
  Age: 29 Year
  Sex: Female

DRUGS (1)
  1. MUCINEX DM [Suspect]
     Dosage: PATIENT INGESTED 1 TABLET 4 HOURS AGO.
     Route: 048

REACTIONS (2)
  - SUICIDAL IDEATION [None]
  - TACHYCARDIA [None]
